FAERS Safety Report 9536567 (Version 3)
Quarter: 2013Q3

REPORT INFORMATION
  Report Type: Spontaneous
  Country: JP (occurrence: JP)
  Receive Date: 20130919
  Receipt Date: 20130920
  Transmission Date: 20140515
  Serious: Yes (Other)
  Sender: FDA-Public Use
  Company Number: JP-JNJFOC-20130903343

PATIENT
  Age: 54 Year
  Sex: Male

DRUGS (3)
  1. TRAMCET [Suspect]
     Indication: PAIN IN EXTREMITY
     Route: 048
     Dates: start: 20130819, end: 20130902
  2. LOXONIN [Concomitant]
     Indication: PAIN
     Route: 048
     Dates: end: 20130902
  3. TERNELIN [Concomitant]
     Indication: PAIN
     Route: 048
     Dates: end: 20120902

REACTIONS (2)
  - Liver function test abnormal [Recovering/Resolving]
  - Hepatic neoplasm [Unknown]
